FAERS Safety Report 6740578-6 (Version None)
Quarter: 2010Q2

REPORT INFORMATION
  Report Type: 
  Country: None (occurrence: None)
  Receive Date: 20100525
  Receipt Date: 20100513
  Transmission Date: 20101027
  Serious: Yes (Life-Threatening, Hospitalization, Other)
  Sender: FDA-Public Use
  Company Number: IE-MEDIMMUNE-MEDI-0009912

PATIENT
  Sex: Male

DRUGS (3)
  1. SYNAGIS [Suspect]
     Route: 030
     Dates: start: 20091030, end: 20091101
  2. FERROUS SULFATE TAB [Concomitant]
     Route: 048
  3. KAPSOVIT [Concomitant]
     Indication: VITAMIN SUPPLEMENTATION
     Route: 048

REACTIONS (6)
  - BREATH SOUNDS ABNORMAL [None]
  - BRONCHIOLITIS [None]
  - COLLAPSE OF LUNG [None]
  - MALAISE [None]
  - POOR QUALITY SLEEP [None]
  - RESPIRATORY SYNCYTIAL VIRUS INFECTION [None]
